FAERS Safety Report 15889370 (Version 2)
Quarter: 2019Q1

REPORT INFORMATION
  Report Type: Spontaneous
  Country: BR (occurrence: BR)
  Receive Date: 20190130
  Receipt Date: 20190307
  Transmission Date: 20190417
  Serious: Yes (Hospitalization, Other)
  Sender: FDA-Public Use
  Company Number: BR-PFIZER INC-2019023476

PATIENT
  Age: 62 Year
  Sex: Female

DRUGS (2)
  1. LORAX//LORAZEPAM [Suspect]
     Active Substance: LORAZEPAM
     Indication: INSOMNIA
  2. LORAX//LORAZEPAM [Suspect]
     Active Substance: LORAZEPAM
     Indication: ANXIOLYTIC THERAPY
     Dosage: 1 MG, DAILY (EVERY DAY AT NIGHT)
     Dates: start: 2017

REACTIONS (2)
  - Aneurysm [Recovered/Resolved]
  - Drug dependence [Unknown]

NARRATIVE: CASE EVENT DATE: 201810
